FAERS Safety Report 8684536 (Version 3)
Quarter: 2012Q4

REPORT INFORMATION
  Report Type: 
  Country: BR (occurrence: BR)
  Receive Date: 20120726
  Receipt Date: 20120919
  Transmission Date: 20130627
  Serious: Yes (Hospitalization)
  Sender: FDA-Public Use
  Company Number: BR-B.I. PHARMACEUTICALS,INC./RIDGEFIELD-2012-BR-00803BR

PATIENT
  Age: 71 None
  Sex: Male

DRUGS (6)
  1. PRADAXA [Suspect]
     Indication: CARDIAC DISORDER
     Dosage: 220 mg
     Route: 048
     Dates: start: 201201, end: 20120709
  2. UNKNOWN DRUG [Concomitant]
     Indication: SPINAL DISORDER
  3. ANCORON [Concomitant]
     Indication: CORONARY ARTERY DISEASE
  4. ATENOLOL [Concomitant]
     Indication: CORONARY ARTERY DISEASE
  5. MONOCORDIL [Concomitant]
     Indication: CORONARY ARTERY DISEASE
  6. CLINFAR [Concomitant]
     Indication: CORONARY ARTERY DISEASE

REACTIONS (5)
  - Cholecystitis acute [Recovered/Resolved]
  - Abdominal infection [Recovered/Resolved]
  - Pneumonia [Recovered/Resolved]
  - Intussusception [Recovered/Resolved]
  - Pleural effusion [Recovered/Resolved]
